FAERS Safety Report 15215310 (Version 3)
Quarter: 2019Q1

REPORT INFORMATION
  Report Type: Report from Study
  Country: FR (occurrence: FR)
  Receive Date: 20180730
  Receipt Date: 20190111
  Transmission Date: 20190417
  Serious: Yes (Hospitalization)
  Sender: FDA-Public Use
  Company Number: FR-ROCHE-2160743

PATIENT
  Age: 59 Year
  Sex: Female

DRUGS (3)
  1. IBRUTINIB [Suspect]
     Active Substance: IBRUTINIB
     Indication: MANTLE CELL LYMPHOMA
     Dosage: C1 AT D2 TO C16 AT D28
     Route: 048
     Dates: start: 20170330, end: 20180709
  2. VENETOCLAX. [Suspect]
     Active Substance: VENETOCLAX
     Indication: MANTLE CELL LYMPHOMA
     Dosage: C1BIS : D1 TO D7: 20MG; D8 TO D14: 50MG; D15 TO D21: 100MG; D22 TO D28: 200MG; ; C2 : D1 TO D7: 400M
     Route: 048
     Dates: start: 20170427, end: 20180719
  3. OBINUTUZUMAB. [Suspect]
     Active Substance: OBINUTUZUMAB
     Indication: MANTLE CELL LYMPHOMA
     Dosage: 100MG AT D1, 900MG D2, 1000MG AT D8?C1 BIS AND C2 TO C6: 1000MG AT D1?C8, C10, C12, C14, C16: 1000MG
     Route: 042
     Dates: start: 20170330, end: 20180709

REACTIONS (2)
  - Lower respiratory tract infection [Recovered/Resolved]
  - Hypoxia [Recovered/Resolved]

NARRATIVE: CASE EVENT DATE: 20180719
